FAERS Safety Report 9655513 (Version 3)
Quarter: 2013Q4

REPORT INFORMATION
  Report Type: Spontaneous
  Country: US (occurrence: US)
  Receive Date: 20131029
  Receipt Date: 20131122
  Transmission Date: 20140711
  Serious: No
  Sender: FDA-Public Use
  Company Number: US-RB-057610-13

PATIENT
  Age: 51 Year
  Sex: Female

DRUGS (2)
  1. SUBOXONE TABLET [Suspect]
     Indication: DRUG DEPENDENCE
     Dosage: UNKNOWN DOSING DETAILS
     Route: 060
  2. SUBOXONE FILM [Suspect]
     Indication: DRUG DEPENDENCE
     Dosage: SUBOXONE FILM; UNKNOWN DOSING DETAILS
     Route: 060

REACTIONS (2)
  - Vomiting [Recovered/Resolved]
  - Headache [Not Recovered/Not Resolved]
